FAERS Safety Report 7747731-3 (Version None)
Quarter: 2011Q3

REPORT INFORMATION
  Report Type: 
  Country: None (occurrence: None)
  Receive Date: 20110909
  Receipt Date: 20110830
  Transmission Date: 20111222
  Serious: Yes (Other)
  Sender: FDA-Public Use
  Company Number: 1030756

PATIENT

DRUGS (2)
  1. OXALIPLATIN [Suspect]
     Dosage: 300 MG MILLIGRAM(S),  ,
     Dates: start: 20110825
  2. DEXTROSE [Concomitant]

REACTIONS (5)
  - THROAT TIGHTNESS [None]
  - PAIN IN EXTREMITY [None]
  - HYPERAESTHESIA [None]
  - DYSPNOEA [None]
  - PARAESTHESIA [None]
